FAERS Safety Report 15327087 (Version 2)
Quarter: 2018Q3

REPORT INFORMATION
  Report Type: Spontaneous
  Country: IN (occurrence: IN)
  Receive Date: 20180828
  Receipt Date: 20180906
  Transmission Date: 20181010
  Serious: Yes (Other)
  Sender: FDA-Public Use
  Company Number: IN-PFIZER INC-2018336204

PATIENT
  Age: 54 Year
  Sex: Male

DRUGS (2)
  1. PEMETREXED. [Concomitant]
     Active Substance: PEMETREXED
     Indication: LUNG ADENOCARCINOMA
     Dosage: 500 MG/M2, CYCLIC
  2. CARBOPLATIN. [Suspect]
     Active Substance: CARBOPLATIN
     Indication: LUNG ADENOCARCINOMA
     Dosage: UNK, CYCLIC (AUC X 5, THREE CYCLES)

REACTIONS (2)
  - Occipital neuralgia [Recovered/Resolved]
  - Neurotoxicity [Recovered/Resolved]
